FAERS Safety Report 4512285-1 (Version None)
Quarter: 2004Q4

REPORT INFORMATION
  Report Type: 
  Country: None (occurrence: None)
  Receive Date: 20041129
  Receipt Date: 20040922
  Transmission Date: 20050328
  Serious: Yes (Hospitalization, Other)
  Sender: FDA-Public Use
  Company Number: KE-GLAXOSMITHKLINE-B0346131A

PATIENT
  Age: 37 Year
  Sex: Female

DRUGS (2)
  1. COMBIVIR [Suspect]
     Indication: HIV INFECTION
     Dosage: 1TAB TWICE PER DAY
     Route: 048
     Dates: start: 20040903
  2. NEVIRAPINE [Suspect]
     Indication: HIV INFECTION
     Dosage: 1TAB PER DAY
     Route: 048
     Dates: start: 20040903

REACTIONS (20)
  - CYANOSIS [None]
  - DROOLING [None]
  - DRUG EXPOSURE DURING PREGNANCY [None]
  - DYSPHAGIA [None]
  - HAEMOGLOBIN DECREASED [None]
  - HYPERVENTILATION [None]
  - INFECTION [None]
  - JAUNDICE [None]
  - LYMPHADENOPATHY [None]
  - LYMPHOCYTE COUNT DECREASED [None]
  - NEUTROPENIA [None]
  - OROPHARYNGEAL SWELLING [None]
  - PALLOR [None]
  - PHARYNGOTONSILLITIS [None]
  - PLATELET COUNT DECREASED [None]
  - PNEUMONIA PRIMARY ATYPICAL [None]
  - PULMONARY TUBERCULOSIS [None]
  - PYREXIA [None]
  - RALES [None]
  - WHITE BLOOD CELL COUNT DECREASED [None]
